FAERS Safety Report 14707286 (Version 1)
Quarter: 2018Q2

REPORT INFORMATION
  Report Type: Spontaneous
  Country: US (occurrence: US)
  Receive Date: 20180403
  Receipt Date: 20180403
  Transmission Date: 20180711
  Serious: Yes (Other)
  Sender: FDA-Public Use
  Company Number: US-TEVA-2018-US-878355

PATIENT
  Sex: Female

DRUGS (1)
  1. COPAXONE [Suspect]
     Active Substance: GLATIRAMER ACETATE
     Dosage: INJECTION (PFS), FORMSTRENGTH WAS UNKNOWN

REACTIONS (4)
  - Multiple sclerosis relapse [Unknown]
  - Drug ineffective [Unknown]
  - Multiple sclerosis [Unknown]
  - Urticaria [Not Recovered/Not Resolved]
